FAERS Safety Report 7324569-2 (Version None)
Quarter: 2011Q1

REPORT INFORMATION
  Report Type: 
  Country: None (occurrence: None)
  Receive Date: 20110218
  Receipt Date: 20110214
  Transmission Date: 20110831
  Serious: Yes (Other)
  Sender: FDA-Public Use
  Company Number: A0913398A

PATIENT
  Age: 68 Year
  Sex: Female

DRUGS (2)
  1. ASPIRIN + CAFFEINE + SALICYLAMIDE (FORMULATION UNKNOWN) (ASPIRIN+CAFFE [Suspect]
  2. ASPIRIN + CAFFEINE + SALICYLAMIDE (FORMULATION UNKNOWN) (ASPIRIN+CAFFE [Suspect]
     Dosage: ORAL
     Route: 048

REACTIONS (6)
  - PRODUCT MEASURED POTENCY ISSUE [None]
  - FEELING ABNORMAL [None]
  - DEPENDENCE [None]
  - DRUG ADMINISTRATION ERROR [None]
  - PSYCHOMOTOR HYPERACTIVITY [None]
  - INTENTIONAL DRUG MISUSE [None]
